FAERS Safety Report 6354679-8 (Version None)
Quarter: 2009Q3

REPORT INFORMATION
  Report Type: 
  Country: None (occurrence: None)
  Receive Date: 20090909
  Receipt Date: 20090826
  Transmission Date: 20100115
  Serious: Yes (Hospitalization, Other)
  Sender: FDA-Public Use
  Company Number: 2007-01790

PATIENT
  Age: 70 Year
  Sex: Male
  Weight: 71 kg

DRUGS (26)
  1. VELCADE [Suspect]
     Indication: MULTIPLE MYELOMA
     Dosage: SEE IMAGE
     Route: 042
     Dates: start: 20070305, end: 20070315
  2. VELCADE [Suspect]
     Indication: MULTIPLE MYELOMA
     Dosage: SEE IMAGE
     Route: 042
     Dates: start: 20070326, end: 20070329
  3. VELCADE [Suspect]
     Indication: MULTIPLE MYELOMA
     Dosage: SEE IMAGE
     Route: 042
     Dates: start: 20080306, end: 20080710
  4. VELCADE [Suspect]
     Indication: MULTIPLE MYELOMA
     Dosage: SEE IMAGE
     Route: 042
     Dates: start: 20081116, end: 20090305
  5. VELCADE [Suspect]
     Indication: MULTIPLE MYELOMA
     Dosage: SEE IMAGE
     Route: 042
     Dates: start: 20081116, end: 20090305
  6. DEXAMETHASONE [Concomitant]
  7. LASIX [Concomitant]
  8. ALDACTONE [Concomitant]
  9. FAMOTIDINE [Concomitant]
  10. ALLOPURINOL [Concomitant]
  11. MUCOSTA (REBAMIPIDE) [Concomitant]
  12. SULFAMETHOXAZOLE AND TRIMETHOPRIM [Concomitant]
  13. ISODINE (POVIDINE-IODINE) [Concomitant]
  14. SEROTONE (AZASETRON HYDROCHLORIDE) [Concomitant]
  15. PURSENNIDE (SENNA LEAF) [Concomitant]
  16. NEOPHAGEN (GLYCYRRHIZINATE POTASSIUM) [Concomitant]
  17. URSO 250 [Concomitant]
  18. ACYCLOVIR [Concomitant]
  19. NEU-UP (NARTOGRASTIM) [Concomitant]
  20. RED BLOOD CELLS [Concomitant]
  21. SEROTONE (AZASETRON CHLORPHENAMINE MALEATE) [Concomitant]
  22. CHLOR-TRIMETON [Concomitant]
  23. ITIRIZOLE (ITRACONAZOLE) [Concomitant]
  24. VALTREX [Concomitant]
  25. METHYCOBAL (MECOBALAMIN) [Concomitant]
  26. LOXONIN (LOXOPROFEN SODIUM) [Concomitant]

REACTIONS (7)
  - DIARRHOEA [None]
  - DYSURIA [None]
  - HAEMORRHAGE SUBCUTANEOUS [None]
  - HEPATIC FUNCTION ABNORMAL [None]
  - NEUROPATHY PERIPHERAL [None]
  - PLATELET COUNT DECREASED [None]
  - WHITE BLOOD CELL COUNT DECREASED [None]
